FAERS Safety Report 4927419-4 (Version None)
Quarter: 2006Q1

REPORT INFORMATION
  Report Type: 
  Country: None (occurrence: None)
  Receive Date: 20060228
  Receipt Date: 20060227
  Transmission Date: 20060701
  Serious: Yes (Hospitalization)
  Sender: FDA-Public Use
  Company Number: 200610997EU

PATIENT
  Age: 23 Year
  Sex: Male

DRUGS (1)
  1. NICODERM [Suspect]
     Indication: SMOKING CESSATION THERAPY
     Dosage: 1PAT PER DAY
     Route: 062
     Dates: start: 20060131, end: 20060202

REACTIONS (5)
  - CHEMICAL POISONING [None]
  - HEPATITIS [None]
  - MALAISE [None]
  - PAIN [None]
  - VOMITING [None]
